FAERS Safety Report 8285934-2 (Version None)
Quarter: 2012Q2

REPORT INFORMATION
  Report Type: 
  Country: None (occurrence: None)
  Receive Date: 20120415
  Receipt Date: 20120402
  Transmission Date: 20120825
  Serious: Yes (Death)
  Sender: FDA-Public Use
  Company Number: NL-MYLANLABS-2012S1007535

PATIENT
  Age: 79 Year
  Sex: Male

DRUGS (10)
  1. CLOPIDOGREL [Concomitant]
     Dosage: LOADING DOSE OF 300MG THEN 75MG ONCE DAILY
     Route: 065
  2. NADROPARIN CALCIUM [Concomitant]
     Dosage: 7600 ANTI-XA UNITS TWICE DAILY
     Route: 065
  3. CIPROFLOXACIN [Suspect]
     Indication: BRONCHOPNEUMONIA
     Route: 065
  4. SIMVASTATIN [Concomitant]
     Route: 065
  5. ERLOTINIB HYDROCHLORIDE [Interacting]
     Indication: NON-SMALL CELL LUNG CANCER STAGE IIIB
     Route: 065
  6. METOPROLOL SUCCINATE [Concomitant]
     Route: 065
  7. AMOXICILLIN AND CLAVULANATE POTASSIUM [Concomitant]
     Indication: BRONCHOPNEUMONIA
     Dosage: 1000MG/200MG 4 TIMES DAILY
     Route: 042
  8. CARBASALATE CALCIUM [Concomitant]
     Dosage: LOADING DOSE OF 300MG THEN 80MG ONCE DAILY
     Route: 065
  9. CLOPIDOGREL [Concomitant]
     Dosage: LOADING DOSE OF 300MG THEN 75MG ONCE DAILY
     Route: 065
  10. CARBASALATE CALCIUM [Concomitant]
     Dosage: LOADING DOSE OF 300MG THEN 80MG ONCE DAILY
     Route: 065

REACTIONS (3)
  - DRUG LEVEL INCREASED [None]
  - DRUG INTERACTION [None]
  - INTERSTITIAL LUNG DISEASE [None]
